FAERS Safety Report 10238700 (Version 1)
Quarter: 2014Q2

REPORT INFORMATION
  Report Type: Spontaneous
  Country: US (occurrence: US)
  Receive Date: 20140616
  Receipt Date: 20140616
  Transmission Date: 20141212
  Serious: Yes (Hospitalization)
  Sender: FDA-Public Use
  Company Number: US-ACTAVIS-2014-12433

PATIENT
  Sex: Male
  Weight: 91 kg

DRUGS (2)
  1. METFORMIN HYDROCHLORIDE (WATSON LABORATORIES) [Suspect]
     Indication: DIABETES MELLITUS
     Dosage: 0.5 DF, BID
     Route: 048
     Dates: start: 2012
  2. CRESTOR [Concomitant]
     Indication: BLOOD CHOLESTEROL INCREASED
     Dosage: UNK, DAILY
     Route: 048

REACTIONS (3)
  - Pancreatitis [Recovered/Resolved]
  - Muscle spasms [Recovered/Resolved]
  - Blood glucose abnormal [Recovered/Resolved]
